FAERS Safety Report 10483708 (Version 1)
Quarter: 2014Q3

REPORT INFORMATION
  Report Type: Report from Study
  Country: PL (occurrence: PL)
  Receive Date: 20140930
  Receipt Date: 20140930
  Transmission Date: 20150326
  Serious: Yes (Hospitalization)
  Sender: FDA-Public Use
  Company Number: PL-VERTEX PHARMACEUTICALS-2014-004103

PATIENT
  Age: 53 Year
  Sex: Male

DRUGS (3)
  1. TELAPREVIR [Suspect]
     Active Substance: TELAPREVIR
     Indication: HEPATITIS C
     Route: 048
  2. RIBAVIRIN. [Suspect]
     Active Substance: RIBAVIRIN
     Indication: HEPATITIS C
     Route: 065
  3. PEGYLATED INTERFERON ALPHA NOS [Suspect]
     Active Substance: PEGINTERFERON ALFA-2A OR PEGINTERFERON ALFA-2B
     Indication: HEPATITIS C
     Route: 065

REACTIONS (7)
  - Hepatic function abnormal [Recovered/Resolved]
  - Asthenia [Recovered/Resolved]
  - Prostatitis [Recovered/Resolved]
  - Urinary tract infection [Recovered/Resolved]
  - Drug intolerance [Unknown]
  - Thrombocytopenia [Recovered/Resolved]
  - Skin lesion [Recovered/Resolved]
